FAERS Safety Report 9616484 (Version 2)
Quarter: 2013Q4

REPORT INFORMATION
  Report Type: Spontaneous
  Country: US (occurrence: US)
  Receive Date: 20131011
  Receipt Date: 20131021
  Transmission Date: 20140711
  Serious: Yes (Hospitalization, Other)
  Sender: FDA-Public Use
  Company Number: US-GILEAD-2013-0085137

PATIENT
  Sex: Female

DRUGS (3)
  1. LETAIRIS [Suspect]
     Indication: PULMONARY HYPERTENSION
     Dosage: 5 MG, QD
     Route: 048
     Dates: start: 20130919
  2. LETAIRIS [Suspect]
     Indication: CREST SYNDROME
  3. COUMADIN                           /00014802/ [Concomitant]

REACTIONS (2)
  - Pneumonia [Recovering/Resolving]
  - Lung disorder [Recovering/Resolving]
